FAERS Safety Report 18572789 (Version 1)
Quarter: 2020Q4

REPORT INFORMATION
  Report Type: Spontaneous
  Country: ES (occurrence: ES)
  Receive Date: 20201203
  Receipt Date: 20201203
  Transmission Date: 20210114
  Serious: Yes (Other)
  Sender: FDA-Public Use
  Company Number: ES-SA-2020SA345480

PATIENT

DRUGS (1)
  1. AUBAGIO [Suspect]
     Active Substance: TERIFLUNOMIDE
     Dosage: 28 TABLETS
     Dates: start: 20200110, end: 20201022

REACTIONS (1)
  - Breast neoplasm [Recovering/Resolving]

NARRATIVE: CASE EVENT DATE: 20201008
